FAERS Safety Report 7817132-8 (Version None)
Quarter: 2011Q4

REPORT INFORMATION
  Report Type: 
  Country: None (occurrence: None)
  Receive Date: 20111017
  Receipt Date: 20111017
  Transmission Date: 20120403
  Serious: No
  Sender: FDA-Public Use
  Company Number: None

PATIENT
  Age: 64 Year
  Sex: Female
  Weight: 78.017 kg

DRUGS (1)
  1. SAVELLA [Suspect]

REACTIONS (1)
  - FUNGAL INFECTION [None]
